FAERS Safety Report 6385736-8 (Version None)
Quarter: 2009Q4

REPORT INFORMATION
  Report Type: 
  Country: None (occurrence: None)
  Receive Date: 20091002
  Receipt Date: 20080925
  Transmission Date: 20100525
  Serious: No
  Sender: FDA-Public Use
  Company Number: US-ASTRAZENECA-2008UW20312

PATIENT
  Age: 61 Year
  Sex: Female
  Weight: 90.7 kg

DRUGS (3)
  1. ARIMIDEX [Suspect]
     Indication: BREAST CANCER
     Route: 048
     Dates: start: 20080201
  2. ATACAND [Concomitant]
  3. SIMVASTATIN [Concomitant]
     Dates: start: 20080724, end: 20080923

REACTIONS (4)
  - BLOOD CHOLESTEROL INCREASED [None]
  - DYSGEUSIA [None]
  - HOT FLUSH [None]
  - MOUTH ULCERATION [None]
